FAERS Safety Report 4459236-6 (Version None)
Quarter: 2004Q3

REPORT INFORMATION
  Report Type: 
  Country: None (occurrence: None)
  Receive Date: 20040927
  Receipt Date: 20040916
  Transmission Date: 20050211
  Serious: Yes (Death)
  Sender: FDA-Public Use
  Company Number: DK-JNJFOC-20040905249

PATIENT
  Sex: Female

DRUGS (2)
  1. GALANTAMINE [Suspect]
     Indication: DRUG USE FOR UNKNOWN INDICATION
     Route: 065
  2. ARICEPT [Suspect]
     Route: 049
     Dates: start: 20030828, end: 20040420

REACTIONS (1)
  - SUDDEN DEATH [None]
